FAERS Safety Report 6390848-9 (Version None)
Quarter: 2009Q4

REPORT INFORMATION
  Report Type: 
  Country: None (occurrence: None)
  Receive Date: 20091006
  Receipt Date: 20091001
  Transmission Date: 20100525
  Serious: Yes (Life-Threatening, Hospitalization)
  Sender: FDA-Public Use
  Company Number: US-GILEAD-2009-0022117

PATIENT
  Sex: Female

DRUGS (10)
  1. LETAIRIS [Suspect]
     Indication: PULMONARY ARTERIAL HYPERTENSION
     Route: 048
     Dates: start: 20090213, end: 20090513
  2. CYTOXAN [Concomitant]
     Dates: start: 20090203
  3. PREDNISONE [Concomitant]
     Dates: start: 20090203
  4. DEMADEX [Concomitant]
  5. BACTRIM [Concomitant]
     Dates: start: 20090203
  6. NEXIUM [Concomitant]
  7. FOSAMAX [Concomitant]
     Dates: start: 20090203
  8. ATIVAN [Concomitant]
     Dates: start: 20090203
  9. ASPIRIN [Concomitant]
     Dates: start: 20090203
  10. OXYGEN [Concomitant]

REACTIONS (3)
  - DYSPNOEA [None]
  - HYPOXIA [None]
  - PULMONARY OEDEMA [None]
